FAERS Safety Report 10706891 (Version 1)
Quarter: 2015Q1

REPORT INFORMATION
  Report Type: Spontaneous
  Country: US (occurrence: US)
  Receive Date: 20150113
  Receipt Date: 20150113
  Transmission Date: 20150721
  Serious: Yes (Other)
  Sender: FDA-Public Use
  Company Number: US-BAYER-2015-001639

PATIENT
  Age: 51 Year
  Sex: Male
  Weight: 91 kg

DRUGS (2)
  1. VIAGRA [Suspect]
     Active Substance: SILDENAFIL CITRATE
     Indication: ERECTILE DYSFUNCTION
     Dosage: 50 MG, UNK
     Route: 048
     Dates: start: 20141122
  2. LEVITRA [Suspect]
     Active Substance: VARDENAFIL HYDROCHLORIDE TRIHYDRATE
     Indication: ERECTILE DYSFUNCTION
     Dosage: 20 MG, UNK
     Route: 048
     Dates: start: 20140323

REACTIONS (5)
  - Chromatopsia [None]
  - Inappropriate schedule of drug administration [None]
  - Vision blurred [None]
  - Metamorphopsia [None]
  - Wrong technique in drug usage process [None]

NARRATIVE: CASE EVENT DATE: 20141124
